FAERS Safety Report 24169783 (Version 1)
Quarter: 2024Q3

REPORT INFORMATION
  Report Type: Spontaneous
  Country: UG (occurrence: UG)
  Receive Date: 20240803
  Receipt Date: 20240803
  Transmission Date: 20241016
  Serious: Yes (Other)
  Sender: AUROBINDO
  Company Number: UG-AUROBINDO-AUR-APL-2024-037630

PATIENT
  Age: 19 Year
  Sex: Female

DRUGS (4)
  1. ACYCLOVIR [Suspect]
     Active Substance: ACYCLOVIR
     Indication: Anogenital warts
     Dosage: 400 MILLIGRAM, 3 TIMES A DAY
     Route: 048
  2. ACYCLOVIR [Suspect]
     Active Substance: ACYCLOVIR
     Indication: Genital haemorrhage
  3. EFAVIRENZ, LAMIVUDINE AND TENOFOVIR DISOPROXIL FUMARATE [Suspect]
     Active Substance: EFAVIRENZ\LAMIVUDINE\TENOFOVIR DISOPROXIL FUMARATE
     Indication: Antiretroviral therapy
     Dosage: UNK
     Route: 065
  4. EFAVIRENZ, LAMIVUDINE AND TENOFOVIR DISOPROXIL FUMARATE [Suspect]
     Active Substance: EFAVIRENZ\LAMIVUDINE\TENOFOVIR DISOPROXIL FUMARATE
     Indication: HIV infection

REACTIONS (7)
  - Malaria [Unknown]
  - Anaemia [Recovered/Resolved]
  - Anogenital warts [Unknown]
  - Genital haemorrhage [Unknown]
  - Productive cough [Unknown]
  - Treatment noncompliance [Unknown]
  - Intentional product misuse [Unknown]
